FAERS Safety Report 5062020-6 (Version None)
Quarter: 2006Q3

REPORT INFORMATION
  Report Type: 
  Country: None (occurrence: None)
  Receive Date: 20060703
  Receipt Date: 20051024
  Transmission Date: 20061208
  Serious: No
  Sender: FDA-Public Use
  Company Number: 2005S1010449

PATIENT
  Age: 46 Year
  Sex: Male

DRUGS (18)
  1. CLOZAPINE [Suspect]
     Indication: PSYCHOTIC DISORDER
     Dosage: 100 MG; QAM; PO; SEE IMAGE
     Route: 048
     Dates: start: 20011201
  2. CLOZAPINE [Suspect]
     Indication: SCHIZOAFFECTIVE DISORDER
     Dosage: 100 MG; QAM; PO; SEE IMAGE
     Route: 048
     Dates: start: 20011201
  3. CLOZAPINE [Suspect]
     Indication: SCHIZOPHRENIA
     Dosage: 100 MG; QAM; PO; SEE IMAGE
     Route: 048
     Dates: start: 20011201
  4. CLOZAPINE [Suspect]
     Indication: PSYCHOTIC DISORDER
     Dosage: 100 MG; QAM; PO; SEE IMAGE
     Route: 048
     Dates: start: 20011201
  5. CLOZAPINE [Suspect]
     Indication: SCHIZOAFFECTIVE DISORDER
     Dosage: 100 MG; QAM; PO; SEE IMAGE
     Route: 048
     Dates: start: 20011201
  6. CLOZAPINE [Suspect]
     Indication: SCHIZOPHRENIA
     Dosage: 100 MG; QAM; PO; SEE IMAGE
     Route: 048
     Dates: start: 20011201
  7. PEGASYS [Suspect]
     Dosage: QW; SC
     Route: 058
     Dates: start: 20051007
  8. RISPERIDONE [Concomitant]
  9. CLONAZEPAM [Concomitant]
  10. ESOMEPRAZOLE MAGNESIUM [Concomitant]
  11. NICOTINE [Concomitant]
  12. VITAMINS NOS [Concomitant]
  13. HYDROXYZINE EMBONATE [Concomitant]
  14. RIBAVIRIN [Concomitant]
  15. MODAFINIL [Concomitant]
  16. FLUTICASONE PROPIONATE/SALMETEROL XINAFOATE [Concomitant]
  17. IPRATROIUM BROMIDE/SALBUTAMOL SULFATE [Concomitant]
  18. TRAZODONE HCL [Concomitant]

REACTIONS (2)
  - GRANULOCYTOPENIA [None]
  - LEUKOPENIA [None]
